FAERS Safety Report 16376348 (Version 1)
Quarter: 2019Q2

REPORT INFORMATION
  Report Type: Spontaneous
  Country: FR (occurrence: FR)
  Receive Date: 20190531
  Receipt Date: 20190531
  Transmission Date: 20190711
  Serious: Yes (Life-Threatening)
  Sender: FDA-Public Use
  Company Number: FR-UCBSA-2019022094

PATIENT
  Age: 65 Year
  Sex: Female

DRUGS (7)
  1. KEPPRA [Suspect]
     Active Substance: LEVETIRACETAM
     Indication: EPILEPSY
     Dosage: 1000 MG PER DAY
     Route: 048
     Dates: start: 20190322
  2. IMOVANE [Suspect]
     Active Substance: ZOPICLONE
     Indication: INSOMNIA
     Dosage: 7.5 MILLIGRAM PER DAY
     Route: 048
     Dates: start: 20190212, end: 20190402
  3. ESOMEPRAZOLE. [Suspect]
     Active Substance: ESOMEPRAZOLE MAGNESIUM
     Indication: GASTRIC ULCER
     Dosage: 40 MILLIGRAM  PER DAY
     Route: 048
     Dates: start: 20190212
  4. CORTANCYL [Suspect]
     Active Substance: PREDNISONE
     Indication: BRAIN CANCER METASTATIC
     Dosage: 40 MILLIGRAM PER DAY
     Route: 048
     Dates: start: 20190212, end: 20190328
  5. BACTRIM [Suspect]
     Active Substance: SULFAMETHOXAZOLE\TRIMETHOPRIM
     Indication: PROPHYLAXIS
     Dosage: 3 DOSAGE FORM PER WEEK 1 TAB ON MONDAY, WEDNESDAY AND FRIDAY
     Route: 048
     Dates: start: 20190212
  6. ALIMTA [Suspect]
     Active Substance: PEMETREXED DISODIUM
     Indication: BRAIN CANCER METASTATIC
     Dosage: 825 MILLIGRAM  PER 21 DAY
     Route: 042
     Dates: start: 20190322, end: 20190322
  7. CARBOPLATINE [Suspect]
     Active Substance: CARBOPLATIN
     Indication: BRAIN CANCER METASTATIC
     Dosage: 700 MILLIGRAM PER 21 DAYS
     Route: 042
     Dates: start: 20190322, end: 20190322

REACTIONS (1)
  - Meningitis herpes [Recovering/Resolving]

NARRATIVE: CASE EVENT DATE: 20190328
